FAERS Safety Report 18320096 (Version 1)
Quarter: 2020Q3

REPORT INFORMATION
  Report Type: Spontaneous
  Country: JP (occurrence: JP)
  Receive Date: 20200929
  Receipt Date: 20200929
  Transmission Date: 20201103
  Serious: Yes (Other)
  Sender: FDA-Public Use
  Company Number: JP-TERSERA THERAPEUTICS LLC-2020TRS002956

PATIENT

DRUGS (1)
  1. ZOLADEX [Suspect]
     Active Substance: GOSERELIN ACETATE
     Indication: PROSTATE CANCER
     Dosage: 3.6 MILLIGRAM, EVERY 4 WEEKS
     Route: 058

REACTIONS (6)
  - Malignant neoplasm progression [Unknown]
  - Polyuria [Recovering/Resolving]
  - Pollakiuria [Recovering/Resolving]
  - Hypoaesthesia [Unknown]
  - Body temperature increased [Unknown]
  - Dry mouth [Recovering/Resolving]
